FAERS Safety Report 6475265-5 (Version None)
Quarter: 2009Q4

REPORT INFORMATION
  Report Type: 
  Country: None (occurrence: None)
  Receive Date: 20091204
  Receipt Date: 20090420
  Transmission Date: 20100525
  Serious: Yes (Hospitalization)
  Sender: FDA-Public Use
  Company Number: JP-ELI_LILLY_AND_COMPANY-JP200904003627

PATIENT
  Age: 59 Year
  Sex: Male

DRUGS (8)
  1. HUMALOG MIX 75/25 [Suspect]
     Dosage: 9 IU, DAILY (1/D)
     Route: 058
     Dates: start: 20090331, end: 20090405
  2. HUMALOG MIX 50/50 [Suspect]
     Dosage: UNK, 2/D
     Route: 058
     Dates: start: 20081016, end: 20090311
  3. HUMALOG [Suspect]
     Dosage: 3 IU, 3/D
     Route: 058
     Dates: start: 20090311, end: 20090312
  4. HUMALOG [Suspect]
     Dosage: 11 IU(5IU-3IU-3IU), DAILY (1/D)
     Route: 058
     Dates: start: 20090313, end: 20090313
  5. HUMALOG [Suspect]
     Dosage: 13 IU(7IU-3IU-3IU), DAILY (1/D)
     Route: 058
     Dates: start: 20090314, end: 20090327
  6. HUMALOG [Suspect]
     Dosage: 9 IU(4IU-2IU-3IU), DAILY (1/D)
     Route: 058
     Dates: start: 20090328, end: 20090330
  7. CONIEL [Concomitant]
     Route: 065
     Dates: end: 20090326
  8. MYSLEE [Concomitant]
     Route: 065

REACTIONS (4)
  - ALANINE AMINOTRANSFERASE INCREASED [None]
  - ASPARTATE AMINOTRANSFERASE INCREASED [None]
  - BLOOD GLUCOSE INCREASED [None]
  - HEPATIC FUNCTION ABNORMAL [None]
